FAERS Safety Report 8476479 (Version 2)
Quarter: 2012Q4

REPORT INFORMATION
  Report Type: 
  Country: FR (occurrence: FR)
  Receive Date: 20120326
  Receipt Date: 20121204
  Transmission Date: 20130627
  Serious: Yes (Hospitalization)
  Sender: FDA-Public Use
  Company Number: FR-VERTEX PHARMACEUTICALS INC.-000000000000000393

PATIENT
  Sex: Male
  Weight: 93 kg

DRUGS (7)
  1. INCIVO [Suspect]
     Indication: CHRONIC HEPATITIS C
     Dosage: 750 mg, tid
     Route: 048
     Dates: start: 20111205, end: 20120227
  2. PEGASYS [Concomitant]
     Indication: CHRONIC HEPATITIS C
     Dosage: 180 ?g, qw
     Route: 058
     Dates: start: 20111205
  3. COPEGUS [Concomitant]
     Indication: CHRONIC HEPATITIS C
     Dosage: 1200 mg, qd
     Route: 048
     Dates: start: 20111205
  4. ZYPREXA [Concomitant]
  5. SEROPRAM B [Concomitant]
  6. RIVOTRIL [Concomitant]
  7. SUBUTEX [Concomitant]

REACTIONS (1)
  - Generalised oedema [Recovered/Resolved]
